FAERS Safety Report 20313078 (Version 2)
Quarter: 2022Q2

REPORT INFORMATION
  Report Type: Other
  Country: US (occurrence: None)
  Receive Date: 20220109
  Receipt Date: 20220411
  Transmission Date: 20220720
  Serious: Yes (Other)
  Sender: FDA-Public Use
  Company Number: US-ROCHE-2996401

PATIENT
  Age: 38 Year
  Sex: Female
  Weight: 63.560 kg

DRUGS (7)
  1. OCREVUS [Suspect]
     Active Substance: OCRELIZUMAB
     Indication: Relapsing multiple sclerosis
     Dosage: THEN 600MG EVERY 6 MONTHS
     Route: 042
     Dates: start: 20201120
  2. TECFIDERA [Concomitant]
     Active Substance: DIMETHYL FUMARATE
  3. LINZESS [Concomitant]
     Active Substance: LINACLOTIDE
     Route: 048
  4. TOVIAZ [Concomitant]
     Active Substance: FESOTERODINE FUMARATE
     Dosage: AT NIGHT
     Route: 048
  5. LAMOTIGIN [Concomitant]
     Route: 048
  6. GABAPENTIN [Concomitant]
     Active Substance: GABAPENTIN
     Route: 048
  7. BUSPIRONE [Concomitant]
     Active Substance: BUSPIRONE HYDROCHLORIDE
     Dosage: ONCE OR TWICE DAILY
     Route: 048

REACTIONS (6)
  - COVID-19 [Recovered/Resolved]
  - Illness [Unknown]
  - Nasopharyngitis [Unknown]
  - Gait disturbance [Unknown]
  - Asthenia [Unknown]
  - Multiple sclerosis [Unknown]

NARRATIVE: CASE EVENT DATE: 20211201
